FAERS Safety Report 24379018 (Version 1)
Quarter: 2024Q3

REPORT INFORMATION
  Report Type: Spontaneous
  Country: CN (occurrence: CN)
  Receive Date: 20240930
  Receipt Date: 20240930
  Transmission Date: 20241016
  Serious: Yes (Hospitalization)
  Sender: Steriscience PTE
  Company Number: CN-STERISCIENCE B.V.-2024-ST-001490

PATIENT
  Age: 1 Day
  Sex: Female

DRUGS (1)
  1. MIDAZOLAM [Suspect]
     Active Substance: MIDAZOLAM
     Indication: Sedative therapy
     Dosage: 0.05 MILLIGRAM/KILOGRAM, INFUSION
     Route: 042

REACTIONS (2)
  - Myoclonus [Recovered/Resolved]
  - Paradoxical drug reaction [Unknown]
